FAERS Safety Report 25251285 (Version 1)
Quarter: 2025Q2

REPORT INFORMATION
  Report Type: Spontaneous
  Country: CA (occurrence: None)
  Receive Date: 20250429
  Receipt Date: 20250429
  Transmission Date: 20250717
  Serious: Yes (Other)
  Sender: FDA-CTU
  Company Number: None

PATIENT
  Age: 71 Year
  Sex: Male
  Weight: 105.75 kg

DRUGS (12)
  1. TRINTELLIX [Suspect]
     Active Substance: VORTIOXETINE HYDROBROMIDE
     Dates: start: 20241113, end: 20250418
  2. PAROXETINE [Suspect]
     Active Substance: PAROXETINE
  3. DEVICE [Concomitant]
     Active Substance: DEVICE
  4. COREG [Concomitant]
     Active Substance: CARVEDILOL
  5. SERTRALINE [Concomitant]
     Active Substance: SERTRALINE HYDROCHLORIDE
  6. VASARTAN/HCTZ [Concomitant]
  7. OZEMPIC [Concomitant]
     Active Substance: SEMAGLUTIDE
  8. METFORMIN [Concomitant]
     Active Substance: METFORMIN HYDROCHLORIDE
  9. LIPITOR [Concomitant]
     Active Substance: ATORVASTATIN CALCIUM
  10. FINASTERIDE [Concomitant]
     Active Substance: FINASTERIDE
  11. SYNTHROID [Concomitant]
     Active Substance: LEVOTHYROXINE SODIUM
  12. VITAMIN D3 [Concomitant]
     Active Substance: CHOLECALCIFEROL

REACTIONS (2)
  - Sleep disorder [None]
  - Middle insomnia [None]

NARRATIVE: CASE EVENT DATE: 20250418
